FAERS Safety Report 26212074 (Version 1)
Quarter: 2025Q4

REPORT INFORMATION
  Report Type: Spontaneous
  Country: US (occurrence: US)
  Receive Date: 20251230
  Receipt Date: 20251230
  Transmission Date: 20260118
  Serious: Yes (Other)
  Sender: RANBAXY
  Company Number: US-SUN PHARMACEUTICAL INDUSTRIES INC-2025R1-543927

PATIENT
  Age: 88 Year
  Sex: Female

DRUGS (2)
  1. OLANZAPINE [Suspect]
     Active Substance: OLANZAPINE
     Indication: Vascular dementia
     Dosage: 5 MILLIGRAM AT 0134 HOURS (LEFT THIGH) AND 0552 HOURS (LEFT THIGH)
     Route: 030
  2. ZIPRASIDONE [Concomitant]
     Active Substance: ZIPRASIDONE
     Indication: Vascular dementia
     Dosage: 10 MILLIGRAM AT 0617HOURS (RIGHT THIGH) AND 2307 HOURS (RIGHT DELTOID)
     Route: 065

REACTIONS (1)
  - Electrocardiogram QT prolonged [Recovering/Resolving]
